FAERS Safety Report 6901640-8 (Version None)
Quarter: 2010Q3

REPORT INFORMATION
  Report Type: 
  Country: None (occurrence: None)
  Receive Date: 20100803
  Receipt Date: 20080219
  Transmission Date: 20110219
  Serious: Yes (Other)
  Sender: FDA-Public Use
  Company Number: US-PFIZER INC-2008016242

PATIENT
  Sex: Male
  Weight: 100 kg

DRUGS (9)
  1. LYRICA [Suspect]
     Indication: FIBROMYALGIA
     Route: 048
     Dates: start: 20080107, end: 20080216
  2. SOMA [Concomitant]
     Route: 048
     Dates: start: 20010101
  3. SKELAXIN [Concomitant]
     Route: 048
     Dates: start: 20010101
  4. XANAX [Concomitant]
     Route: 048
     Dates: start: 20010101
  5. ALL OTHER THERAPEUTIC PRODUCTS [Concomitant]
     Route: 048
     Dates: start: 20010101
  6. ZANAFLEX [Concomitant]
     Route: 048
     Dates: start: 20010101
  7. OXYCONTIN [Concomitant]
     Route: 048
     Dates: start: 20010101
  8. BENADRYL [Concomitant]
  9. FLONASE [Concomitant]

REACTIONS (6)
  - ABDOMINAL DISTENSION [None]
  - DIPLOPIA [None]
  - DIZZINESS [None]
  - HYPOTENSION [None]
  - PRURITUS GENERALISED [None]
  - WEIGHT INCREASED [None]
